FAERS Safety Report 8010417-4 (Version None)
Quarter: 2011Q4

REPORT INFORMATION
  Report Type: 
  Country: None (occurrence: None)
  Receive Date: 20111228
  Receipt Date: 20111221
  Transmission Date: 20120403
  Serious: No
  Sender: FDA-Public Use
  Company Number: US-JNJFOC-20111203977

PATIENT
  Age: 21 Year
  Sex: Male

DRUGS (2)
  1. DEPAKOTE [Concomitant]
     Indication: PRODUCT USED FOR UNKNOWN INDICATION
     Route: 065
  2. INVEGA SUSTENNA [Suspect]
     Indication: PRODUCT USED FOR UNKNOWN INDICATION
     Dosage: FREQUENCY UNSPECIFIED
     Route: 030
     Dates: start: 20111001

REACTIONS (2)
  - RETROGRADE EJACULATION [None]
  - SEXUAL DYSFUNCTION [None]
